FAERS Safety Report 4339339-7 (Version None)
Quarter: 2004Q2

REPORT INFORMATION
  Report Type: 
  Country: None (occurrence: None)
  Receive Date: 20040412
  Receipt Date: 20040326
  Transmission Date: 20050107
  Serious: Yes (Hospitalization)
  Sender: FDA-Public Use
  Company Number: S04-USA-00753-01

PATIENT
  Age: 61 Year
  Sex: Male

DRUGS (6)
  1. NAMENDA [Suspect]
     Indication: DEMENTIA ALZHEIMER'S TYPE
     Dosage: 5 MG QD PO
     Route: 048
     Dates: start: 20040126, end: 20040201
  2. NAMENDA [Suspect]
     Indication: DEMENTIA ALZHEIMER'S TYPE
     Dosage: 10 MG QD PO
     Route: 048
     Dates: start: 20040202, end: 20040208
  3. NAMENDA [Suspect]
     Indication: DEMENTIA ALZHEIMER'S TYPE
     Dosage: 15 MG QD PO
     Route: 048
     Dates: start: 20040209, end: 20040215
  4. NAMENDA [Suspect]
     Indication: DEMENTIA ALZHEIMER'S TYPE
     Dosage: 20 MG QD PO
     Route: 048
     Dates: start: 20040216, end: 20040201
  5. ARICEPT [Concomitant]
  6. DILANTIN [Concomitant]

REACTIONS (7)
  - DRUG INTERACTION [None]
  - DRUG LEVEL INCREASED [None]
  - LETHARGY [None]
  - PARTIAL SEIZURES [None]
  - PNEUMONIA ASPIRATION [None]
  - SOMNOLENCE [None]
  - TREATMENT NONCOMPLIANCE [None]
